FAERS Safety Report 22191069 (Version 2)
Quarter: 2023Q2

REPORT INFORMATION
  Report Type: Spontaneous
  Country: US (occurrence: US)
  Receive Date: 20230410
  Receipt Date: 20230417
  Transmission Date: 20230722
  Serious: Yes (Death, Life-Threatening, Hospitalization, Other)
  Sender: FDA-Public Use
  Company Number: US-MLMSERVICE-20230327-4191248-1

PATIENT
  Age: 30 Year
  Sex: Male
  Weight: 69.2 kg

DRUGS (16)
  1. METHYLPREDNISOLONE [Suspect]
     Active Substance: METHYLPREDNISOLONE
     Indication: Periorbital oedema
     Dosage: UNK
     Route: 065
     Dates: start: 2021
  2. METHYLPREDNISOLONE [Suspect]
     Active Substance: METHYLPREDNISOLONE
     Indication: Swelling face
  3. PREDNISONE [Suspect]
     Active Substance: PREDNISONE
     Indication: Swelling face
     Dosage: TAPER
     Route: 065
     Dates: start: 2021
  4. PENICILLIN G [Concomitant]
     Active Substance: PENICILLIN G
     Indication: Secondary syphilis
     Dosage: UNK
     Route: 065
  5. DOXYCYCLINE [Concomitant]
     Active Substance: DOXYCYCLINE
     Indication: Swelling face
     Dosage: UNK
     Dates: start: 2021
  6. FLUCONAZOLE [Concomitant]
     Active Substance: FLUCONAZOLE
     Indication: Oesophageal candidiasis
     Dosage: UNK
     Route: 065
  7. FLUCONAZOLE [Concomitant]
     Active Substance: FLUCONAZOLE
     Indication: Oropharyngeal candidiasis
  8. FLUCONAZOLE [Concomitant]
     Active Substance: FLUCONAZOLE
     Indication: Oral candidiasis
  9. VANCOMYCIN [Concomitant]
     Active Substance: VANCOMYCIN
     Indication: Staphylococcal bacteraemia
     Dosage: UNK
     Route: 042
  10. EPINEPHRINE [Concomitant]
     Active Substance: EPINEPHRINE
     Indication: Periorbital oedema
     Dosage: UNK
     Route: 065
     Dates: start: 2021
  11. SULFAMETHOXAZOLE AND TRIMETHOPRIM [Concomitant]
     Active Substance: SULFAMETHOXAZOLE\TRIMETHOPRIM
     Indication: Antifungal prophylaxis
     Dosage: UNK
     Route: 065
  12. VALGANCICLOVIR HYDROCHLORIDE [Concomitant]
     Active Substance: VALGANCICLOVIR HYDROCHLORIDE
     Indication: Cytomegalovirus viraemia
     Dosage: UNK
     Route: 065
  13. DELTASONE [Concomitant]
     Active Substance: PREDNISONE
     Indication: Swelling face
     Dosage: 2 DOSAGE FORM, ONCE A DAY
     Route: 065
     Dates: start: 20210724, end: 20210727
  14. DELTASONE [Concomitant]
     Active Substance: PREDNISONE
     Indication: Periorbital oedema
     Dosage: 2 DOSAGE FORM, ONCE A DAY
     Route: 065
     Dates: start: 20210925, end: 20210925
  15. MEDROL [Concomitant]
     Active Substance: METHYLPREDNISOLONE
     Indication: Periorbital oedema
     Dosage: 1 DOSAGE FORM
     Route: 065
     Dates: start: 20210902
  16. MEDROL [Concomitant]
     Active Substance: METHYLPREDNISOLONE
     Indication: Swelling face

REACTIONS (2)
  - Condition aggravated [Fatal]
  - Kaposi^s sarcoma [Fatal]

NARRATIVE: CASE EVENT DATE: 20210101
